FAERS Safety Report 9772500 (Version 2)
Quarter: 2014Q3

REPORT INFORMATION
  Report Type: Spontaneous
  Country: US (occurrence: None)
  Receive Date: 20131218
  Receipt Date: 20140917
  Transmission Date: 20150326
  Serious: No
  Sender: FDA-Public Use
  Company Number: 2013CT000074

PATIENT
  Age: 63 Year
  Sex: Female
  Weight: 67.13 kg

DRUGS (2)
  1. KETOCONAZOLE. [Concomitant]
     Active Substance: KETOCONAZOLE
  2. KORLYM [Suspect]
     Active Substance: MIFEPRISTONE
     Indication: CUSHING^S SYNDROME
     Route: 048
     Dates: start: 20130815

REACTIONS (7)
  - Nerve compression [None]
  - Hyperglycaemia [None]
  - Lipohypertrophy [None]
  - Abdominal pain [None]
  - Urinary retention postoperative [None]
  - Fatigue [None]
  - Weight increased [None]

NARRATIVE: CASE EVENT DATE: 20130828
